FAERS Safety Report 4262306-9 (Version None)
Quarter: 2004Q1

REPORT INFORMATION
  Report Type: 
  Country: None (occurrence: None)
  Receive Date: 20040102
  Receipt Date: 20031202
  Transmission Date: 20041129
  Serious: Yes (Death, Life-Threatening, Hospitalization, Other)
  Sender: FDA-Public Use
  Company Number: PHBS2003JP13488

PATIENT
  Age: 75 Year
  Sex: Male

DRUGS (6)
  1. TEGRETOL [Suspect]
     Indication: CEREBRAL INFARCTION
     Dosage: 200 MG/DAY
     Route: 048
     Dates: start: 20030530, end: 20030831
  2. TEGRETOL [Suspect]
     Dosage: 200 MG/DAY
     Route: 048
     Dates: start: 20030911, end: 20031122
  3. TERNELIN [Concomitant]
     Indication: CEREBRAL INFARCTION
     Dosage: 1 MG/DAY
     Route: 048
     Dates: start: 20030525, end: 20030530
  4. YM [Concomitant]
     Indication: GASTRITIS
     Dosage: 3 G/DAY
     Route: 048
     Dates: start: 20030530, end: 20031122
  5. WARFARIN SODIUM [Concomitant]
     Dosage: 1 MG/DAY
     Route: 048
     Dates: start: 20030605, end: 20031122
  6. BENSYLPENICILLIN [Concomitant]
     Dosage: 16 MIU/DAY
     Route: 042

REACTIONS (23)
  - BLOOD CREATINE PHOSPHOKINASE INCREASED [None]
  - C-REACTIVE PROTEIN INCREASED [None]
  - CARDIAC ARREST [None]
  - CARDIAC FAILURE [None]
  - CELLULITIS [None]
  - CENTRAL LINE INFECTION [None]
  - ECZEMA [None]
  - EOSINOPHIL COUNT INCREASED [None]
  - ERYTHEMA [None]
  - HEART RATE DECREASED [None]
  - ILEUS [None]
  - PLATELET COUNT DECREASED [None]
  - PNEUMONIA [None]
  - PYREXIA [None]
  - REFUSAL OF TREATMENT BY RELATIVE [None]
  - RESPIRATORY ARREST [None]
  - RHABDOMYOLYSIS [None]
  - SEPSIS [None]
  - STAPHYLOCOCCAL INFECTION [None]
  - STEVENS-JOHNSON SYNDROME [None]
  - SUBDURAL HAEMATOMA [None]
  - TACHYCARDIA [None]
  - WHITE BLOOD CELL COUNT INCREASED [None]
